FAERS Safety Report 10234825 (Version 1)
Quarter: 2014Q2

REPORT INFORMATION
  Report Type: Spontaneous
  Country: US (occurrence: None)
  Receive Date: 20140610
  Receipt Date: 20140610
  Transmission Date: 20141212
  Serious: Yes (Hospitalization)
  Sender: FDA-Public Use
  Company Number: 54973 AE # 1537

PATIENT
  Age: 14 Month
  Sex: Male

DRUGS (1)
  1. HYLAND^S BABY TEETH TABLETS [Suspect]
     Indication: TEETHING
     Dosage: 2-3 TABS QID X A MONTH

REACTIONS (5)
  - Mental status changes [None]
  - Clumsiness [None]
  - Fall [None]
  - Irritability [None]
  - Somnolence [None]
